FAERS Safety Report 4315431-8 (Version None)
Quarter: 2004Q1

REPORT INFORMATION
  Report Type: 
  Country: None (occurrence: None)
  Receive Date: 20040309
  Receipt Date: 20040224
  Transmission Date: 20041129
  Serious: Yes (Hospitalization)
  Sender: FDA-Public Use
  Company Number: 201832

PATIENT
  Age: 67 Year
  Sex: Female

DRUGS (18)
  1. HERCEPTIN [Suspect]
     Indication: BREAST CANCER
     Dosage: SEE IMAGE
     Route: 036
     Dates: start: 20030417, end: 20030417
  2. HERCEPTIN [Suspect]
     Indication: BREAST CANCER
     Dosage: SEE IMAGE
     Route: 036
     Dates: start: 20030401
  3. TAXOTERE [Suspect]
     Indication: BREAST CANCER
     Dosage: 150 MG, Q3W, INTRAVENOUS
     Route: 042
     Dates: start: 20030418
  4. CARBOPLATIN [Suspect]
     Indication: BREAST CANCER
     Dosage: 510 MG, Q3W, INTRAVENOUS
     Route: 042
     Dates: start: 20030418, end: 20030418
  5. CARBOPLATIN [Suspect]
     Indication: BREAST CANCER
     Dosage: 510 MG, Q3W, INTRAVENOUS
     Route: 042
     Dates: start: 20030501, end: 20030717
  6. COMPAZINE [Concomitant]
  7. POTASSIUM CHLORIDE [Concomitant]
  8. RESTORIL [Concomitant]
  9. BENADRYL [Concomitant]
  10. TYLENOL [Concomitant]
  11. ANZEMET [Concomitant]
  12. DECADRON [Concomitant]
  13. NEUPOGEN [Concomitant]
  14. LOMOTIL [Concomitant]
  15. KYTRIL [Concomitant]
  16. PAXIL [Concomitant]
  17. COUMADIN [Concomitant]
  18. MAGNESIUM SULFATE [Concomitant]

REACTIONS (10)
  - BLOOD CREATININE INCREASED [None]
  - CARDIAC FAILURE CONGESTIVE [None]
  - CARDIOMEGALY [None]
  - EXTRASYSTOLES [None]
  - HEART RATE IRREGULAR [None]
  - NAUSEA [None]
  - PALPITATIONS [None]
  - SINUS TACHYCARDIA [None]
  - TROPONIN INCREASED [None]
  - VOMITING [None]
